FAERS Safety Report 6695418-0 (Version None)
Quarter: 2010Q2

REPORT INFORMATION
  Report Type: 
  Country: None (occurrence: None)
  Receive Date: 20100422
  Receipt Date: 20100422
  Transmission Date: 20101027
  Serious: No
  Sender: FDA-Public Use
  Company Number: None

PATIENT
  Age: 62 Year
  Sex: Female
  Weight: 107.0489 kg

DRUGS (1)
  1. MAXALT [Suspect]
     Indication: MIGRAINE
     Dosage: .5  1-2 X DAY USED IT FOR YEARS FOR OCCASIONAL MIGRAINE HEADACHE; DAILY
     Dates: start: 20080901, end: 20081001

REACTIONS (4)
  - BLINDNESS [None]
  - PAIN IN JAW [None]
  - RETINAL ARTERY OCCLUSION [None]
  - TOOTH ABSCESS [None]
